FAERS Safety Report 17085323 (Version 3)
Quarter: 2019Q4

REPORT INFORMATION
  Report Type: Spontaneous
  Country: FR (occurrence: FR)
  Receive Date: 20191128
  Receipt Date: 20191227
  Transmission Date: 20200122
  Serious: Yes (Hospitalization, Other)
  Sender: FDA-Public Use
  Company Number: FR-AUROBINDO-AUR-APL-2019-074949

PATIENT
  Age: 60 Year
  Sex: Male

DRUGS (12)
  1. ATORVASTATIN 40 MG [Suspect]
     Active Substance: ATORVASTATIN
     Indication: MYOCARDIAL INFARCTION
     Dosage: 80 MILLIGRAM, ONCE A DAY
     Route: 048
     Dates: start: 2019
  2. CARTEOL (CARTEOLOL HYDROCHLORIDE) [Suspect]
     Active Substance: CARTEOLOL HYDROCHLORIDE
     Dosage: 2 GTT DROPS, ONCE A DAY,RESTARTED
     Route: 047
     Dates: start: 2019
  3. BRILIQUE [Suspect]
     Active Substance: TICAGRELOR
     Indication: MYOCARDIAL INFARCTION
     Dosage: 90 MILLIGRAM, ONCE A DAY
     Route: 048
     Dates: start: 2019
  4. TAREG [Suspect]
     Active Substance: VALSARTAN
     Indication: MYOCARDIAL INFARCTION
     Dosage: 40 MILLIGRAM, ONCE A DAY IN THE EVENING
     Route: 048
     Dates: start: 2019
  5. COLCHICINE. [Suspect]
     Active Substance: COLCHICINE
     Indication: MYOCARDIAL INFARCTION
     Dosage: 1 MILLIGRAM, ONCE A DAY IN THE EVENING
     Route: 048
     Dates: start: 2019
  6. CARTEOL (CARTEOLOL HYDROCHLORIDE) [Suspect]
     Active Substance: CARTEOLOL HYDROCHLORIDE
     Indication: GLAUCOMA
     Dosage: 2 GTT DROPS, ONCE A DAY (RESTARTED)
     Route: 047
     Dates: start: 2019, end: 20191120
  7. EPLERENONE 25MG [Interacting]
     Active Substance: EPLERENONE
     Indication: MYOCARDIAL INFARCTION
     Dosage: 25 MILLIGRAM, ONCE A DAY AT LUNCH
     Route: 048
     Dates: start: 2019
  8. BISOPROLOL 1.25 MG [Interacting]
     Active Substance: BISOPROLOL
     Indication: CARDIAC FAILURE
     Dosage: 1.25 MILLIGRAM, ONCE A DAY
     Route: 048
     Dates: start: 2019
  9. BISOPROLOL 1.25 MG [Interacting]
     Active Substance: BISOPROLOL
     Indication: MYOCARDIAL INFARCTION
  10. CARTEOL (CARTEOLOL HYDROCHLORIDE) [Suspect]
     Active Substance: CARTEOLOL HYDROCHLORIDE
     Dosage: 2 GTT DROPS, ONCE A DAY, STARTED APPROXIMATELY 5 YEARS AGO (REPORTED AS SEVERAL YEARS)
     Route: 047
     Dates: end: 2019
  11. KARDEGIC [Suspect]
     Active Substance: ASPIRIN DL-LYSINE
     Indication: MYOCARDIAL INFARCTION
     Dosage: 1 DOSAGE FORM, ONCE A DAY AT LUNCH
     Route: 048
     Dates: start: 2019
  12. FUROSEMIDE 40 MG [Suspect]
     Active Substance: FUROSEMIDE
     Indication: MYOCARDIAL INFARCTION
     Dosage: 40 MILLIGRAM, ONCE A DAY, IN THE MORNING
     Route: 048
     Dates: start: 2019

REACTIONS (10)
  - Labelled drug-disease interaction medication error [Unknown]
  - Labelled drug-drug interaction medication error [Unknown]
  - Cardiac failure [Unknown]
  - Contraindicated product administered [Unknown]
  - Visual impairment [Not Recovered/Not Resolved]
  - Myocardial infarction [Unknown]
  - Vertigo [Not Recovered/Not Resolved]
  - Cataract [Not Recovered/Not Resolved]
  - Hypotension [Unknown]
  - Weight decreased [Recovered/Resolved]

NARRATIVE: CASE EVENT DATE: 2019
